FAERS Safety Report 9496533 (Version 1)
Quarter: 2013Q3

REPORT INFORMATION
  Report Type: Report from Study
  Country: US (occurrence: US)
  Receive Date: 20130904
  Receipt Date: 20130904
  Transmission Date: 20140515
  Serious: Yes (Other)
  Sender: FDA-Public Use
  Company Number: PHEH2013US018554

PATIENT
  Sex: Male

DRUGS (1)
  1. TOBI [Suspect]
     Dosage: UNK 300 MG / 5 ML BID
     Route: 048

REACTIONS (3)
  - Lung infection [Unknown]
  - Fungal infection [Unknown]
  - Incorrect route of drug administration [Unknown]
